FAERS Safety Report 11077832 (Version 5)
Quarter: 2016Q2

REPORT INFORMATION
  Report Type: Report from Study
  Country: ID (occurrence: ID)
  Receive Date: 20150430
  Receipt Date: 20160513
  Transmission Date: 20160815
  Serious: Yes (Hospitalization, Other)
  Sender: FDA-Public Use
  Company Number: ID-ROCHE-1518608

PATIENT
  Age: 67 Year
  Sex: Female

DRUGS (2)
  1. AVASTIN [Suspect]
     Active Substance: BEVACIZUMAB
     Indication: TRIPLE NEGATIVE BREAST CANCER
     Route: 017
  2. XELODA [Concomitant]
     Active Substance: CAPECITABINE
     Route: 065

REACTIONS (15)
  - Paraesthesia [Not Recovered/Not Resolved]
  - Breast discharge [Unknown]
  - Subcutaneous haematoma [Unknown]
  - Fibrin D dimer increased [Unknown]
  - Haematuria [Not Recovered/Not Resolved]
  - Skin exfoliation [Not Recovered/Not Resolved]
  - Anaemia [Not Recovered/Not Resolved]
  - Chills [Recovered/Resolved with Sequelae]
  - Diarrhoea [Unknown]
  - Haemorrhage [Not Recovered/Not Resolved]
  - Wound [Not Recovered/Not Resolved]
  - Leukocytosis [Unknown]
  - Asthenia [Unknown]
  - Breast enlargement [Unknown]
  - Impaired healing [Not Recovered/Not Resolved]
